FAERS Safety Report 18609574 (Version 2)
Quarter: 2022Q2

REPORT INFORMATION
  Report Type: Spontaneous
  Country: ES (occurrence: ES)
  Receive Date: 20201214
  Receipt Date: 20220523
  Transmission Date: 20220720
  Serious: Yes (Hospitalization)
  Sender: FDA-Public Use
  Company Number: ES-EXE-2020-11-03928

PATIENT
  Age: 2 Month

DRUGS (8)
  1. LAMOTRIGINE [Suspect]
     Active Substance: LAMOTRIGINE
     Indication: Early infantile epileptic encephalopathy with burst-suppression
     Dosage: UNK
     Route: 065
  2. LEVETIRACETAM [Suspect]
     Active Substance: LEVETIRACETAM
     Indication: Early infantile epileptic encephalopathy with burst-suppression
     Dosage: UNKNOWN
     Route: 065
  3. LEVETIRACETAM [Suspect]
     Active Substance: LEVETIRACETAM
     Indication: Partial seizures
  4. VALPROIC ACID [Suspect]
     Active Substance: VALPROIC ACID
     Indication: Early infantile epileptic encephalopathy with burst-suppression
     Dosage: UNK
     Route: 065
  5. CLONAZEPAM [Suspect]
     Active Substance: CLONAZEPAM
     Indication: Early infantile epileptic encephalopathy with burst-suppression
     Dosage: UNK
     Route: 065
  6. OXCARBAZEPINE [Suspect]
     Active Substance: OXCARBAZEPINE
     Indication: Early infantile epileptic encephalopathy with burst-suppression
     Dosage: UNK
     Route: 065
  7. PERAMPANEL [Suspect]
     Active Substance: PERAMPANEL
     Indication: Early infantile epileptic encephalopathy with burst-suppression
     Dosage: UNK
     Route: 065
  8. PHENOBARBITAL [Suspect]
     Active Substance: PHENOBARBITAL
     Indication: Early infantile epileptic encephalopathy with burst-suppression
     Dosage: UNK
     Route: 065

REACTIONS (1)
  - Disease progression [Unknown]
